FAERS Safety Report 18142811 (Version 3)
Quarter: 2021Q4

REPORT INFORMATION
  Report Type: Other
  Country: DE (occurrence: DE)
  Receive Date: 20200813
  Receipt Date: 20211006
  Transmission Date: 20220303
  Serious: Yes (Hospitalization)
  Sender: FDA-Public Use
  Company Number: DE-CELLTRION INC.-2020DE025048

PATIENT

DRUGS (22)
  1. RITUXIMAB [Suspect]
     Active Substance: RITUXIMAB
     Indication: Rheumatoid arthritis
     Dosage: 1000 MG; DATE RECEIVED: 06 SEP 2020
     Route: 041
  2. RITUXIMAB [Suspect]
     Active Substance: RITUXIMAB
     Dosage: RITUXIMAB DOSE GIVEN ON /JUL/2018, /JAN/2019, /JUL/2019, /FEB/2020, DEC/2020
     Route: 041
     Dates: start: 201712
  3. METHOTREXATE [Suspect]
     Active Substance: METHOTREXATE
     Indication: Rheumatoid arthritis
     Route: 065
  4. ETANERCEPT [Suspect]
     Active Substance: ETANERCEPT
     Indication: Rheumatoid arthritis
     Dosage: UNK
     Route: 065
     Dates: start: 201701, end: 201710
  5. ISOSORBIDE [Concomitant]
     Active Substance: ISOSORBIDE
  6. CHOLECALCIFEROL [Concomitant]
     Active Substance: CHOLECALCIFEROL
  7. AMITRIPTYLINE [Concomitant]
     Active Substance: AMITRIPTYLINE
  8. METHIMAZOLE [Concomitant]
     Active Substance: METHIMAZOLE
  9. DENOSUMAB [Concomitant]
     Active Substance: DENOSUMAB
     Indication: Osteoporosis
  10. TORSEMIDE [Concomitant]
     Active Substance: TORSEMIDE
  11. LEVETIRACETAM [Concomitant]
     Active Substance: LEVETIRACETAM
  12. PANTOPRAZOLE [Concomitant]
     Active Substance: PANTOPRAZOLE
  13. BUPRENORPHINE [Concomitant]
     Active Substance: BUPRENORPHINE
  14. ATORVASTATIN [Concomitant]
     Active Substance: ATORVASTATIN
  15. FOLIC ACID [Concomitant]
     Active Substance: FOLIC ACID
  16. SIMVASTATIN [Concomitant]
     Active Substance: SIMVASTATIN
  17. MAGNESIUM [Concomitant]
     Active Substance: MAGNESIUM
  18. PREGABALIN [Concomitant]
     Active Substance: PREGABALIN
  19. CLOPIDOGREL [Concomitant]
     Active Substance: CLOPIDOGREL BISULFATE
  20. RAMIPRIL [Concomitant]
     Active Substance: RAMIPRIL
  21. PREDNISOLONE [Concomitant]
     Active Substance: PREDNISOLONE
  22. BISOPROLOL [Concomitant]
     Active Substance: BISOPROLOL

REACTIONS (7)
  - Acute kidney injury [Recovered/Resolved]
  - Dehydration [Unknown]
  - Dysuria [Recovered/Resolved]
  - Escherichia urinary tract infection [Recovered/Resolved]
  - Gastroenteritis [Recovered/Resolved]
  - Cystitis [Recovered/Resolved]
  - Fatigue [Unknown]

NARRATIVE: CASE EVENT DATE: 20181201
